FAERS Safety Report 7688476-8 (Version None)
Quarter: 2011Q3

REPORT INFORMATION
  Report Type: 
  Country: None (occurrence: None)
  Receive Date: 20110817
  Receipt Date: 20110808
  Transmission Date: 20111222
  Serious: Yes (Other)
  Sender: FDA-Public Use
  Company Number: HR-ASTRAZENECA-2011SE47780

PATIENT
  Age: 67 Year
  Sex: Female

DRUGS (10)
  1. CELLCEPT [Concomitant]
  2. LACIPIL [Concomitant]
     Route: 048
  3. CRESTOR [Suspect]
     Route: 048
     Dates: start: 20101001
  4. OLICARD [Concomitant]
     Route: 048
  5. DURAGESIC-100 [Concomitant]
     Route: 062
  6. TRAMADOL HCL [Concomitant]
     Route: 048
  7. IRUMED [Concomitant]
     Route: 048
  8. NEORAL [Interacting]
     Route: 048
  9. DIAZEPAM [Concomitant]
     Route: 048
  10. DIOVAN HCT [Concomitant]
     Route: 048

REACTIONS (2)
  - DRUG INTERACTION [None]
  - COMPLICATIONS OF TRANSPLANTED KIDNEY [None]
